FAERS Safety Report 19005517 (Version 2)
Quarter: 2021Q1

REPORT INFORMATION
  Report Type: Spontaneous
  Country: US (occurrence: US)
  Receive Date: 20210313
  Receipt Date: 20210323
  Transmission Date: 20210420
  Serious: No
  Sender: FDA-Public Use
  Company Number: US-ORGANON-O2103USA001148

PATIENT
  Age: 30 Year
  Sex: Female
  Weight: 111.57 kg

DRUGS (2)
  1. EPIPEN [Concomitant]
     Active Substance: EPINEPHRINE
     Dosage: UNK
  2. NEXPLANON [Suspect]
     Active Substance: ETONOGESTREL
     Indication: CONTRACEPTION
     Dosage: 1 IMPLANT, LEFT UPPER ARM, EVERY 3 YEARS
     Route: 059
     Dates: start: 20210223

REACTIONS (3)
  - Implant site pain [Not Recovered/Not Resolved]
  - Pain in extremity [Unknown]
  - Medical device site discomfort [Not Recovered/Not Resolved]

NARRATIVE: CASE EVENT DATE: 2021
